FAERS Safety Report 7648276-1 (Version None)
Quarter: 2011Q3

REPORT INFORMATION
  Report Type: 
  Country: None (occurrence: None)
  Receive Date: 20110801
  Receipt Date: 20110725
  Transmission Date: 20111222
  Serious: Yes (Other)
  Sender: FDA-Public Use
  Company Number: US-BAYER-201038563NA

PATIENT
  Age: 36 Year
  Sex: Female
  Weight: 68.027 kg

DRUGS (10)
  1. CARAFATE [Concomitant]
     Dosage: 100 MG, TID, SUSPENSION 2 TEASPOONS
     Route: 048
     Dates: start: 20080617
  2. FLUTAMIDE [Concomitant]
     Dosage: 125 MG, QD
     Route: 048
     Dates: start: 20080617
  3. YAZ [Suspect]
     Dosage: UNK
     Dates: start: 20040101
  4. LEXAPRO [Concomitant]
     Indication: DEPRESSION
     Dosage: 20 MG, QD
     Route: 048
     Dates: start: 20080617
  5. WELLBUTRIN XL [Concomitant]
     Indication: DEPRESSION
     Dosage: 300 MG, QD
     Route: 048
     Dates: start: 20080617
  6. PREVACID [Concomitant]
     Dosage: 30 MG, QD, BEFORE A MEAL
     Route: 048
     Dates: start: 20080617
  7. DROSPIRENONE AND ETHINYL ESTRADIOL [Suspect]
     Dosage: UNK
     Dates: start: 20040101
  8. FLURAZEPAM [Concomitant]
     Dosage: 30 MG, QD, AT BEDTIME AS NEEDED
     Route: 048
     Dates: start: 20080617
  9. GLUMETZA [Concomitant]
     Dosage: 500 MG, UNK, 3 TABIET AT HS
     Route: 048
     Dates: start: 20080617
  10. YASMIN [Suspect]
     Indication: PRODUCT USED FOR UNKNOWN INDICATION
     Dosage: UNK
     Route: 048
     Dates: start: 20040401

REACTIONS (3)
  - CHOLECYSTITIS CHRONIC [None]
  - CHOLELITHIASIS [None]
  - GALLBLADDER DISORDER [None]
